FAERS Safety Report 8837720 (Version 2)
Quarter: 2012Q4

REPORT INFORMATION
  Report Type: 
  Country: JP (occurrence: JP)
  Receive Date: 20121012
  Receipt Date: 20121206
  Transmission Date: 20130627
  Serious: Yes (Hospitalization)
  Sender: FDA-Public Use
  Company Number: JP-ALLERGAN-1213733US

PATIENT
  Age: 81 Year
  Sex: Female

DRUGS (2)
  1. LUMIGAN [Suspect]
     Indication: NORMAL TENSION GLAUCOMA
     Dosage: 2 Gtt, qpm
     Route: 047
     Dates: start: 20111028
  2. LACRIMIN [Concomitant]
     Indication: DRUG USE FOR UNKNOWN INDICATION
     Dosage: UNK
     Route: 047
     Dates: start: 20031204

REACTIONS (2)
  - Epilepsy [Recovered/Resolved]
  - Fall [Recovered/Resolved]
